FAERS Safety Report 9795371 (Version 1)
Quarter: 2014Q1

REPORT INFORMATION
  Report Type: Report from Study
  Country: US (occurrence: US)
  Receive Date: 20140103
  Receipt Date: 20140103
  Transmission Date: 20141002
  Serious: Yes (Hospitalization)
  Sender: FDA-Public Use
  Company Number: US-ROCHE-1327704

PATIENT
  Age: 43 Year
  Sex: Female

DRUGS (5)
  1. LUCENTIS [Suspect]
     Indication: DIABETIC RETINOPATHY
     Dosage: OU
     Route: 050
  2. COMBIGAN [Concomitant]
     Dosage: OS
     Route: 065
  3. TRAVATAN Z [Concomitant]
     Dosage: QHS OS
     Route: 065
  4. LASIX [Concomitant]
     Route: 048
  5. WARFARIN [Concomitant]
     Route: 048

REACTIONS (4)
  - Pulmonary embolism [Unknown]
  - Cellulitis [Unknown]
  - Diabetes mellitus inadequate control [Unknown]
  - Open angle glaucoma [Unknown]
